FAERS Safety Report 12191117 (Version 1)
Quarter: 2016Q1

REPORT INFORMATION
  Report Type: Spontaneous
  Country: US (occurrence: US)
  Receive Date: 20160318
  Receipt Date: 20160318
  Transmission Date: 20160526
  Serious: Yes (Hospitalization)
  Sender: FDA-Public Use
  Company Number: US-JNJFOC-20160310350

PATIENT
  Sex: Male
  Weight: 61.69 kg

DRUGS (3)
  1. INVEGA [Suspect]
     Active Substance: PALIPERIDONE
     Indication: SCHIZOAFFECTIVE DISORDER
     Route: 048
  2. INVEGA SUSTENNA [Suspect]
     Active Substance: PALIPERIDONE PALMITATE
     Indication: SCHIZOAFFECTIVE DISORDER
     Route: 030
     Dates: start: 201507
  3. INVEGA [Suspect]
     Active Substance: PALIPERIDONE
     Indication: SCHIZOAFFECTIVE DISORDER
     Route: 048
     Dates: start: 2013, end: 2015

REACTIONS (6)
  - Memory impairment [Not Recovered/Not Resolved]
  - Adverse event [Unknown]
  - Disturbance in attention [Not Recovered/Not Resolved]
  - Delusion [Unknown]
  - Condition aggravated [Unknown]
  - Adverse event [Unknown]

NARRATIVE: CASE EVENT DATE: 2013
